FAERS Safety Report 15292035 (Version 1)
Quarter: 2018Q3

REPORT INFORMATION
  Report Type: Spontaneous
  Country: IN (occurrence: IN)
  Receive Date: 20180818
  Receipt Date: 20180818
  Transmission Date: 20181010
  Serious: Yes (Other)
  Sender: FDA-Public Use
  Company Number: IN-SUN PHARMACEUTICAL INDUSTRIES LTD-2018R1-181576

PATIENT
  Age: 35 Year
  Sex: Female

DRUGS (4)
  1. OCTREOTIDE. [Suspect]
     Active Substance: OCTREOTIDE
     Indication: NEUROENDOCRINE TUMOUR
     Dosage: UNK
     Route: 065
  2. OCTREOTIDE. [Suspect]
     Active Substance: OCTREOTIDE
     Indication: METASTATIC NEOPLASM
  3. 177LU?DOTATATE [Concomitant]
     Indication: NEUROENDOCRINE TUMOUR
  4. 177LU?DOTATATE [Concomitant]
     Indication: METASTATIC NEOPLASM
     Dosage: UNK
     Route: 065

REACTIONS (3)
  - Metastases to liver [Unknown]
  - Carcinoid heart disease [Unknown]
  - Hepatic lesion [Unknown]
